FAERS Safety Report 7212218-3 (Version None)
Quarter: 2011Q1

REPORT INFORMATION
  Report Type: 
  Country: None (occurrence: None)
  Receive Date: 20110106
  Receipt Date: 20101222
  Transmission Date: 20110831
  Serious: Yes (Hospitalization)
  Sender: FDA-Public Use
  Company Number: GB-PFIZER INC-GB-WYE-G04646009

PATIENT
  Sex: Male

DRUGS (7)
  1. VENLAFAXINE HCL [Suspect]
     Dosage: UNK
     Route: 065
  2. ETHANOL [Suspect]
     Dosage: UNK
     Route: 065
  3. CHLORPROMAZINE [Suspect]
     Dosage: UNK
  4. CLOZARIL [Suspect]
     Dosage: 900 MG, SINGLE
     Dates: start: 20090523
  5. DIAZEPAM [Suspect]
     Dosage: UNK
     Route: 065
  6. OLANZAPINE [Suspect]
     Dosage: UNK
  7. CLOZARIL [Suspect]
     Indication: SCHIZOPHRENIA
     Dosage: UNK
     Route: 048
     Dates: start: 20020513, end: 20071115

REACTIONS (6)
  - INSOMNIA [None]
  - MENTAL STATUS CHANGES [None]
  - SUICIDAL IDEATION [None]
  - THINKING ABNORMAL [None]
  - PARANOIA [None]
  - INTENTIONAL OVERDOSE [None]
